FAERS Safety Report 9520707 (Version 1)
Quarter: 2013Q3

REPORT INFORMATION
  Report Type: Spontaneous
  Country: UA (occurrence: UA)
  Receive Date: 20130913
  Receipt Date: 20130913
  Transmission Date: 20140515
  Serious: Yes (Other)
  Sender: FDA-Public Use
  Company Number: UA-009507513-1309UKR004430

PATIENT
  Sex: Female

DRUGS (2)
  1. PEGINTRON [Suspect]
  2. REBETOL [Suspect]
     Route: 048

REACTIONS (3)
  - Encephalitis [Unknown]
  - Encephalopathy [Unknown]
  - Neuritis [Unknown]
